FAERS Safety Report 8112930-8 (Version None)
Quarter: 2012Q1

REPORT INFORMATION
  Report Type: 
  Country: None (occurrence: None)
  Receive Date: 20120131
  Receipt Date: 20120110
  Transmission Date: 20120608
  Serious: Yes (Other)
  Sender: FDA-Public Use
  Company Number: 1022556-2012-00006

PATIENT
  Age: 31 Year
  Sex: Male

DRUGS (1)
  1. ASPERCREME - GENERIC [Suspect]
     Indication: MYALGIA
     Dosage: TOPICAL
     Route: 061

REACTIONS (4)
  - BLISTER [None]
  - APPLICATION SITE REACTION [None]
  - BURNING SENSATION [None]
  - BURNS SECOND DEGREE [None]
